FAERS Safety Report 5564084-X (Version None)
Quarter: 2007Q4

REPORT INFORMATION
  Report Type: 
  Country: None (occurrence: None)
  Receive Date: 20071217
  Receipt Date: 20071205
  Transmission Date: 20080405
  Serious: Yes (Other)
  Sender: FDA-Public Use
  Company Number: US-PFIZER INC-2007092938

PATIENT
  Sex: Female
  Weight: 63.1 kg

DRUGS (5)
  1. CHANTIX [Suspect]
     Indication: SMOKING CESSATION THERAPY
     Route: 048
     Dates: start: 20071001, end: 20071031
  2. FIORICET [Concomitant]
  3. FIORICET [Concomitant]
  4. VALIUM [Concomitant]
  5. ALL OTHER THERAPEUTIC PRODUCTS [Concomitant]

REACTIONS (4)
  - AGITATION [None]
  - ANXIETY [None]
  - CATATONIA [None]
  - HEADACHE [None]
